FAERS Safety Report 9324386 (Version 1)
Quarter: 2013Q2

REPORT INFORMATION
  Report Type: Not Available
  Country: AU (occurrence: US)
  Receive Date: 20130603
  Receipt Date: 20130603
  Transmission Date: 20140414
  Serious: Yes (Other)
  Sender: FDA-Public Use
  Company Number: AU-NAPPMUNDI-USA-2013-0102830

PATIENT
  Age: 0 Year
  Sex: Male
  Weight: 3.75 kg

DRUGS (4)
  1. HYDROMORPHONE HCL (SIMILAR TO 19-892) [Suspect]
     Indication: PRODUCT USED FOR UNKNOWN INDICATION
     Dosage: UNK
     Dates: start: 20130410
  2. HYDROMORPHONE HCL (SIMILAR TO 19-892) [Suspect]
     Dosage: UNK
     Dates: start: 20130410
  3. PANADEINE /00116401/ [Suspect]
     Indication: PRODUCT USED FOR UNKNOWN INDICATION
  4. TRAMADOL HYDROCHLORIDE [Suspect]
     Indication: PRODUCT USED FOR UNKNOWN INDICATION
     Dosage: 50 MG, UNK
     Dates: start: 20130410

REACTIONS (5)
  - Tremor neonatal [Recovered/Resolved]
  - Abdominal pain [Unknown]
  - Screaming [Recovered/Resolved]
  - Crying [Unknown]
  - Unevaluable event [Unknown]
